FAERS Safety Report 9833582 (Version 1)
Quarter: 2014Q1

REPORT INFORMATION
  Report Type: Spontaneous
  Country: US (occurrence: US)
  Receive Date: 20140122
  Receipt Date: 20140122
  Transmission Date: 20141002
  Serious: No
  Sender: FDA-Public Use
  Company Number: US-BIOGENIDEC-2009BI042076

PATIENT
  Age: 49 Year
  Sex: Female

DRUGS (2)
  1. TYSABRI [Suspect]
     Indication: MULTIPLE SCLEROSIS
     Route: 042
     Dates: start: 20071120, end: 20081216
  2. TYSABRI [Suspect]
     Indication: MULTIPLE SCLEROSIS
     Route: 042
     Dates: start: 20090630

REACTIONS (20)
  - Altered visual depth perception [Not Recovered/Not Resolved]
  - Road traffic accident [Recovered/Resolved]
  - Coordination abnormal [Not Recovered/Not Resolved]
  - Cerebral atrophy [Recovered/Resolved]
  - Fear of injection [Not Recovered/Not Resolved]
  - Speech disorder [Not Recovered/Not Resolved]
  - Optic nerve disorder [Not Recovered/Not Resolved]
  - Stress [Recovered/Resolved]
  - Diplopia [Not Recovered/Not Resolved]
  - Tremor [Recovered/Resolved]
  - Balance disorder [Not Recovered/Not Resolved]
  - Visual pathway disorder [Not Recovered/Not Resolved]
  - Blood iron decreased [Recovered/Resolved]
  - Disturbance in attention [Recovered/Resolved]
  - Anaemia [Recovered/Resolved]
  - Poor venous access [Not Recovered/Not Resolved]
  - Malaise [Not Recovered/Not Resolved]
  - Multiple sclerosis [Unknown]
  - Rash pruritic [Not Recovered/Not Resolved]
  - Pruritus generalised [Not Recovered/Not Resolved]
